FAERS Safety Report 5849417-9 (Version None)
Quarter: 2008Q3

REPORT INFORMATION
  Report Type: 
  Country: None (occurrence: None)
  Receive Date: 20080815
  Receipt Date: 20080730
  Transmission Date: 20090109
  Serious: Yes (Hospitalization)
  Sender: FDA-Public Use
  Company Number: 2008BI019389

PATIENT
  Age: 49 Year
  Sex: Male

DRUGS (2)
  1. AVONEX [Suspect]
     Indication: RELAPSING-REMITTING MULTIPLE SCLEROSIS
     Dosage: 30 UG; QW; IM
     Route: 030
     Dates: start: 20050301
  2. AMITRIPTYLINE HCL [Concomitant]

REACTIONS (5)
  - ARTHROPOD BITE [None]
  - EYE ABSCESS [None]
  - LYME DISEASE [None]
  - PROSTATE CANCER [None]
  - TICK-BORNE FEVER [None]
